FAERS Safety Report 5136739-2 (Version None)
Quarter: 2006Q4

REPORT INFORMATION
  Report Type: 
  Country: None (occurrence: None)
  Receive Date: 20061027
  Receipt Date: 20061018
  Transmission Date: 20070319
  Serious: Yes (Death)
  Sender: FDA-Public Use
  Company Number: DE-ABBOTT-06P-062-0347530-00

PATIENT
  Sex: Female

DRUGS (5)
  1. KALETRA [Suspect]
     Indication: HIV INFECTION
     Route: 048
     Dates: start: 20050825, end: 20051227
  2. ABACAVIR SULFATE [Concomitant]
     Indication: HIV INFECTION
     Route: 048
     Dates: start: 20050825, end: 20051227
  3. LAMIVUDINE [Concomitant]
     Indication: HIV INFECTION
     Route: 048
     Dates: start: 20050825, end: 20051227
  4. COTRIM DS [Concomitant]
     Indication: DRUG USE FOR UNKNOWN INDICATION
     Route: 048
     Dates: start: 20050825, end: 20051227
  5. CHEMOTHERAPY (NOS) [Concomitant]
     Indication: B-CELL LYMPHOMA

REACTIONS (2)
  - LYMPHOMA [None]
  - PNEUMONIA [None]
